FAERS Safety Report 9236190 (Version 3)
Quarter: 2013Q2

REPORT INFORMATION
  Report Type: Spontaneous
  Country: BR (occurrence: BR)
  Receive Date: 20130417
  Receipt Date: 20130517
  Transmission Date: 20140414
  Serious: Yes (Other)
  Sender: FDA-Public Use
  Company Number: BR-PFIZER INC-2013118887

PATIENT
  Age: 55 Year
  Sex: Female
  Weight: 64 kg

DRUGS (6)
  1. LYRICA [Suspect]
     Indication: NEUROPATHY PERIPHERAL
     Dosage: 75 MG, 1X/DAY (AT NIGHT)
     Route: 048
     Dates: start: 20121005
  2. LYRICA [Suspect]
     Indication: NEURALGIA
     Dosage: UNSPECIFIED DOSE, 2X/DAY (EVERY 12 HOURS)
  3. LYRICA [Suspect]
     Indication: FIBROMYALGIA
  4. ARCOXIA [Concomitant]
     Dosage: UNSPECIFIED DOSE, EVENTUALLY (AS NEEDED)
  5. TYLEX [Concomitant]
     Dosage: UNSPECIFIED DOSE, AS NEEDED (EVENTUALLY)
  6. GLUCOSAMINE HYDROCHLORIDE/CHONDROITIN SULFATE [Concomitant]
     Dosage: UNK
     Dates: start: 20101025

REACTIONS (1)
  - Cataract [Unknown]
